FAERS Safety Report 10145771 (Version 1)
Quarter: 2014Q2

REPORT INFORMATION
  Report Type: Spontaneous
  Country: US (occurrence: US)
  Receive Date: 20140501
  Receipt Date: 20140501
  Transmission Date: 20141212
  Serious: No
  Sender: FDA-Public Use
  Company Number: US-ABBVIE-13P-163-1121516-00

PATIENT
  Age: 69 Year
  Sex: Female
  Weight: 44.04 kg

DRUGS (2)
  1. CREON [Suspect]
     Indication: PANCREATITIS CHRONIC
     Dosage: NOON AND EVENING
     Route: 048
     Dates: start: 20130626, end: 20130714
  2. CREON [Suspect]
     Indication: PANCREATITIS CHRONIC
     Dosage: EVERY MORNING
     Route: 048
     Dates: start: 20130626, end: 20130714

REACTIONS (4)
  - Tremor [Not Recovered/Not Resolved]
  - Mobility decreased [Not Recovered/Not Resolved]
  - Asthenia [Not Recovered/Not Resolved]
  - Nausea [Not Recovered/Not Resolved]
